FAERS Safety Report 10202933 (Version 1)
Quarter: 2014Q2

REPORT INFORMATION
  Report Type: Spontaneous
  Country: US (occurrence: US)
  Receive Date: 20140528
  Receipt Date: 20140528
  Transmission Date: 20141212
  Serious: Yes (Hospitalization)
  Sender: FDA-Public Use
  Company Number: US-GILEAD-2014-0103692

PATIENT
  Sex: Female

DRUGS (5)
  1. LETAIRIS [Suspect]
     Indication: PULMONARY HYPERTENSION
     Dosage: 5 MG, QD
     Route: 065
     Dates: start: 20130904
  2. ADCIRCA [Concomitant]
  3. COUMADIN                           /00014802/ [Concomitant]
  4. PROCARDIA                          /00340701/ [Concomitant]
  5. CLARITIN                           /00917501/ [Concomitant]

REACTIONS (6)
  - Chest pain [Recovered/Resolved]
  - Cough [Recovered/Resolved]
  - Seasonal allergy [Recovered/Resolved]
  - Chest pain [Recovered/Resolved]
  - Dyspnoea [Recovered/Resolved]
  - Dyspnoea [Recovered/Resolved]
